FAERS Safety Report 5808004-9 (Version None)
Quarter: 2008Q3

REPORT INFORMATION
  Report Type: 
  Country: None (occurrence: None)
  Receive Date: 20080711
  Receipt Date: 20080701
  Transmission Date: 20090109
  Serious: Yes (Hospitalization)
  Sender: FDA-Public Use
  Company Number: FR-PFIZER INC-2008048163

PATIENT
  Sex: Female
  Weight: 45 kg

DRUGS (6)
  1. LYRICA [Suspect]
  2. EFFEXOR [Interacting]
     Route: 048
  3. MAGNESIUM [Concomitant]
  4. SEGLOR LYOC [Concomitant]
     Route: 048
     Dates: start: 20070403
  5. LEXOMIL [Concomitant]
     Route: 048
     Dates: start: 20070706
  6. BONIVA [Concomitant]
     Route: 048
     Dates: start: 20070403

REACTIONS (2)
  - DRUG INTERACTION [None]
  - MYOCLONUS [None]
